FAERS Safety Report 12250718 (Version 1)
Quarter: 2016Q2

REPORT INFORMATION
  Report Type: Spontaneous
  Country: NG (occurrence: NG)
  Receive Date: 20160410
  Receipt Date: 20160410
  Transmission Date: 20160815
  Serious: Yes (Other)
  Sender: FDA-Public Use
  Company Number: NG-UCBSA-2016007070

PATIENT
  Age: 19 Year
  Sex: Female

DRUGS (1)
  1. KEPPRA [Suspect]
     Active Substance: LEVETIRACETAM
     Indication: PRODUCT USED FOR UNKNOWN INDICATION
     Dosage: 1 G ONCE DAILY
     Route: 048

REACTIONS (7)
  - Loss of consciousness [Unknown]
  - Insomnia [Recovered/Resolved]
  - Vertigo [Recovered/Resolved]
  - Urinary incontinence [Unknown]
  - Aura [Recovered/Resolved]
  - Anal incontinence [Unknown]
  - Drug withdrawal convulsions [Recovered/Resolved]
